FAERS Safety Report 6243522-3 (Version None)
Quarter: 2009Q2

REPORT INFORMATION
  Report Type: 
  Country: None (occurrence: None)
  Receive Date: 20090624
  Receipt Date: 20090612
  Transmission Date: 20091009
  Serious: Yes (Other)
  Sender: FDA-Public Use
  Company Number: PHHY2009MX22876

PATIENT
  Age: 76 Year
  Sex: Female

DRUGS (3)
  1. ZELMAC [Suspect]
     Indication: IRRITABLE BOWEL SYNDROME
     Dosage: 2 TABLETS PER DAY (6MG)
     Route: 048
     Dates: start: 20090508, end: 20090510
  2. ZELMAC [Suspect]
     Dosage: UNK
     Route: 048
     Dates: start: 20090519
  3. NEXIUM [Concomitant]

REACTIONS (2)
  - ABDOMINAL PAIN [None]
  - GASTRIC ULCER [None]
